FAERS Safety Report 4291497-9 (Version None)
Quarter: 2004Q1

REPORT INFORMATION
  Report Type: 
  Country: None (occurrence: None)
  Receive Date: 20040211
  Receipt Date: 20030605
  Transmission Date: 20041129
  Serious: No
  Sender: FDA-Public Use
  Company Number: US-BRISTOL-MYERS SQUIBB COMPANY-12294005

PATIENT
  Age: 9 Year
  Sex: Female
  Weight: 34 kg

DRUGS (3)
  1. CEFZIL [Suspect]
     Indication: COUGH
     Route: 048
     Dates: start: 20030527, end: 20030528
  2. CEFZIL [Suspect]
     Indication: RHINORRHOEA
     Route: 048
     Dates: start: 20030527, end: 20030528
  3. ASTELIN [Concomitant]
     Route: 045

REACTIONS (1)
  - DIARRHOEA [None]
